FAERS Safety Report 7864478-3 (Version None)
Quarter: 2011Q4

REPORT INFORMATION
  Report Type: 
  Country: None (occurrence: None)
  Receive Date: 20111025
  Receipt Date: 20111017
  Transmission Date: 20120403
  Serious: Yes (Other)
  Sender: FDA-Public Use
  Company Number: 2011SP048971

PATIENT
  Age: 60 Year
  Sex: Male

DRUGS (4)
  1. OXIS TURBUHALER [Concomitant]
  2. SYMBICORT [Concomitant]
  3. CITALOPRAM HYDROBROMIDE [Concomitant]
  4. REMERON [Suspect]
     Indication: DEPRESSION
     Dosage: 15 MG;QD
     Dates: start: 20110101

REACTIONS (8)
  - COUGH [None]
  - HAEMATOMA [None]
  - LUNG INFECTION [None]
  - MYALGIA [None]
  - ASTHMA [None]
  - DEPRESSION [None]
  - TENDON PAIN [None]
  - CONDITION AGGRAVATED [None]
